FAERS Safety Report 8644680 (Version 9)
Quarter: 2019Q2

REPORT INFORMATION
  Report Type: Spontaneous
  Country: CA (occurrence: CA)
  Receive Date: 20120702
  Receipt Date: 20190621
  Transmission Date: 20190711
  Serious: Yes (Hospitalization, Other)
  Sender: FDA-Public Use
  Company Number: CA-ROCHE-1082733

PATIENT
  Age: 61 Year
  Sex: Female

DRUGS (9)
  1. XOLAIR [Suspect]
     Active Substance: OMALIZUMAB
     Route: 058
     Dates: start: 20190517
  2. OLMETEC [Concomitant]
     Active Substance: OLMESARTAN MEDOXOMIL
  3. XOLAIR [Suspect]
     Active Substance: OMALIZUMAB
     Indication: ASTHMA
     Route: 058
     Dates: start: 20051104
  4. XOLAIR [Suspect]
     Active Substance: OMALIZUMAB
     Route: 058
     Dates: start: 20170106
  5. XOLAIR [Suspect]
     Active Substance: OMALIZUMAB
     Route: 058
     Dates: start: 20150327
  6. XOLAIR [Suspect]
     Active Substance: OMALIZUMAB
     Route: 058
     Dates: start: 20170202
  7. XOLAIR [Suspect]
     Active Substance: OMALIZUMAB
     Route: 058
     Dates: start: 20170227
  8. XOLAIR [Suspect]
     Active Substance: OMALIZUMAB
     Route: 058
     Dates: start: 20120610
  9. XOLAIR [Suspect]
     Active Substance: OMALIZUMAB
     Route: 058
     Dates: start: 20130219

REACTIONS (15)
  - Swelling face [Unknown]
  - Labyrinthitis [Unknown]
  - Nasopharyngitis [Recovering/Resolving]
  - Vomiting [Unknown]
  - Asthenia [Unknown]
  - Diarrhoea [Unknown]
  - Eye swelling [Unknown]
  - Ear swelling [Unknown]
  - Blood pressure decreased [Unknown]
  - Blood pressure increased [Unknown]
  - Blood pressure fluctuation [Unknown]
  - Incorrect dose administered [Unknown]
  - Nasal congestion [Recovering/Resolving]
  - Malaise [Unknown]
  - Heart rate increased [Unknown]

NARRATIVE: CASE EVENT DATE: 20110812
